FAERS Safety Report 5608767-1 (Version None)
Quarter: 2008Q1

REPORT INFORMATION
  Report Type: 
  Country: None (occurrence: None)
  Receive Date: 20080131
  Receipt Date: 20071201
  Transmission Date: 20080703
  Serious: Yes (Hospitalization)
  Sender: FDA-Public Use
  Company Number: CA-JNJFOC-20080104334

PATIENT
  Age: 6 Decade
  Sex: Female

DRUGS (1)
  1. REMICADE [Suspect]
     Indication: POLYARTHRITIS
     Route: 042

REACTIONS (2)
  - CLOSTRIDIAL INFECTION [None]
  - COLECTOMY TOTAL [None]
